FAERS Safety Report 14355903 (Version 1)
Quarter: 2018Q1

REPORT INFORMATION
  Report Type: Spontaneous
  Country: US (occurrence: US)
  Receive Date: 20180104
  Receipt Date: 20180104
  Transmission Date: 20180509
  Serious: No
  Sender: FDA-Public Use
  Company Number: None

PATIENT
  Age: 51 Year
  Sex: Female

DRUGS (4)
  1. LEVOTYROXIN [Concomitant]
  2. AZAITHOPRINE [Concomitant]
  3. OCALIVA [Suspect]
     Active Substance: OBETICHOLIC ACID
     Indication: PRIMARY BILIARY CHOLANGITIS
     Route: 048
     Dates: start: 201704
  4. URSODIOL. [Concomitant]
     Active Substance: URSODIOL

REACTIONS (1)
  - Pruritus [None]

NARRATIVE: CASE EVENT DATE: 201704
